FAERS Safety Report 12052111 (Version 4)
Quarter: 2016Q3

REPORT INFORMATION
  Report Type: Spontaneous
  Country: FR (occurrence: FR)
  Receive Date: 20160209
  Receipt Date: 20160729
  Transmission Date: 20161109
  Serious: Yes (Hospitalization, Other)
  Sender: FDA-Public Use
  Company Number: FR-009507513-1602FRA004211

PATIENT
  Age: 47 Year
  Sex: Male

DRUGS (4)
  1. CRESTOR [Suspect]
     Active Substance: ROSUVASTATIN CALCIUM
     Dosage: UNK
     Route: 048
     Dates: end: 20151103
  2. LAMALINE [Suspect]
     Active Substance: ACETAMINOPHEN\CAFFEINE\OPIUM
     Indication: MIGRAINE
     Dosage: UNK
     Route: 048
     Dates: end: 20151103
  3. AERIUS [Suspect]
     Active Substance: DESLORATADINE
     Dosage: UNK
     Route: 048
     Dates: end: 20151103
  4. STRIBILD [Suspect]
     Active Substance: COBICISTAT\ELVITEGRAVIR\EMTRICITABINE\TENOFOVIR DISOPROXIL FUMARATE
     Dosage: UNK
     Route: 048
     Dates: start: 20151007, end: 20160204

REACTIONS (3)
  - Pancreatitis [Recovered/Resolved]
  - Suicide attempt [Unknown]
  - Depression [Unknown]

NARRATIVE: CASE EVENT DATE: 20151017
